FAERS Safety Report 8524849-9 (Version None)
Quarter: 2012Q3

REPORT INFORMATION
  Report Type: 
  Country: None (occurrence: None)
  Receive Date: 20120710
  Receipt Date: 20120628
  Transmission Date: 20120928
  Serious: Yes (Death, Hospitalization)
  Sender: FDA-Public Use
  Company Number: 2012PL000119

PATIENT
  Age: 70 Year
  Sex: Male

DRUGS (1)
  1. ALLOPURINOL [Suspect]
     Indication: GOUT

REACTIONS (10)
  - HAEMOGLOBIN DECREASED [None]
  - DYSPNOEA [None]
  - MULTI-ORGAN FAILURE [None]
  - ACUTE HEPATIC FAILURE [None]
  - LEUKOCYTOSIS [None]
  - HAEMODIALYSIS [None]
  - DRUG RASH WITH EOSINOPHILIA AND SYSTEMIC SYMPTOMS [None]
  - INTERNATIONAL NORMALISED RATIO INCREASED [None]
  - GENERAL PHYSICAL HEALTH DETERIORATION [None]
  - RENAL FAILURE ACUTE [None]
